FAERS Safety Report 5405076-0 (Version None)
Quarter: 2007Q3

REPORT INFORMATION
  Report Type: 
  Country: None (occurrence: None)
  Receive Date: 20070803
  Receipt Date: 20070723
  Transmission Date: 20080115
  Serious: Yes (Other)
  Sender: FDA-Public Use
  Company Number: CN-ROCHE-471894

PATIENT
  Age: 25 Year
  Sex: Female
  Weight: 70 kg

DRUGS (1)
  1. XENICAL [Suspect]
     Indication: OBESITY
     Route: 048
     Dates: start: 20050101, end: 20061201

REACTIONS (3)
  - ASTHMA [None]
  - MENSTRUAL DISORDER [None]
  - UPPER RESPIRATORY TRACT INFECTION [None]
